FAERS Safety Report 8059803-7 (Version None)
Quarter: 2012Q1

REPORT INFORMATION
  Report Type: 
  Country: None (occurrence: None)
  Receive Date: 20120119
  Receipt Date: 20120119
  Transmission Date: 20120608
  Serious: Yes (Hospitalization)
  Sender: FDA-Public Use
  Company Number: None

PATIENT
  Age: 80 Year
  Sex: Male
  Weight: 88.6 kg

DRUGS (17)
  1. HYDRALAZINE HCL [Concomitant]
  2. LASIX [Concomitant]
  3. ISOSORBIDE DINITRATE [Concomitant]
  4. NORCO [Concomitant]
  5. DOXYCYCLINE [Suspect]
     Dosage: 100MG BID PO
     Route: 048
  6. SENOKOT [Concomitant]
  7. POTASSIUM CHLORIDE [Concomitant]
  8. ACETAMINOPHEN [Concomitant]
  9. LEVOXYL [Concomitant]
  10. COUMADIN [Suspect]
     Dosage: 4MG QPM PO RECENT - RECENTLY STOPPED
     Route: 048
  11. SPIRONOLACTONE [Concomitant]
  12. SSI [Concomitant]
  13. CA + VIT D [Concomitant]
  14. M.V.I. [Concomitant]
  15. ASPIRIN [Suspect]
     Dosage: 81MG DAILY PO CHRONIC
     Route: 048
  16. CARVEDILOL [Concomitant]
  17. SENOKOT [Concomitant]

REACTIONS (4)
  - HAEMOGLOBIN ABNORMAL [None]
  - INTERNATIONAL NORMALISED RATIO INCREASED [None]
  - HAEMATOCRIT ABNORMAL [None]
  - UPPER GASTROINTESTINAL HAEMORRHAGE [None]
